FAERS Safety Report 14846770 (Version 4)
Quarter: 2018Q4

REPORT INFORMATION
  Report Type: Spontaneous
  Country: GB (occurrence: GB)
  Receive Date: 20180504
  Receipt Date: 20181207
  Transmission Date: 20190204
  Serious: Yes (Hospitalization, Other)
  Sender: FDA-Public Use
  Company Number: GB-MYLANLABS-2018M1030619

PATIENT
  Age: 58 Year
  Sex: Male

DRUGS (2)
  1. CLOZARIL [Suspect]
     Active Substance: CLOZAPINE
     Dosage: UNK
     Route: 048
     Dates: start: 20181031
  2. CLOZARIL [Suspect]
     Active Substance: CLOZAPINE
     Indication: SCHIZOPHRENIA
     Dosage: UNK
     Route: 048
     Dates: start: 20180413

REACTIONS (9)
  - Myocarditis [Recovered/Resolved]
  - Diarrhoea [Unknown]
  - White blood cell count increased [Recovering/Resolving]
  - Lower respiratory tract infection [Unknown]
  - Hyperhidrosis [Unknown]
  - Hypotension [Unknown]
  - Eosinophil count increased [Recovering/Resolving]
  - Malaise [Recovering/Resolving]
  - Tachycardia [Recovered/Resolved]

NARRATIVE: CASE EVENT DATE: 2018
